FAERS Safety Report 5492149-X (Version None)
Quarter: 2007Q4

REPORT INFORMATION
  Report Type: 
  Country: None (occurrence: None)
  Receive Date: 20071015
  Receipt Date: 20070628
  Transmission Date: 20080405
  Serious: No
  Sender: FDA-Public Use
  Company Number: 2007SP002401

PATIENT
  Age: 70 Year
  Sex: Male
  Weight: 74.8435 kg

DRUGS (8)
  1. LUNESTA [Suspect]
     Indication: INSOMNIA
     Dosage: 2 MG; PRN; ORAL; 3 MG; PRN, ORAL, 2 MG  ORAL
     Route: 048
     Dates: start: 20070101, end: 20070701
  2. LUNESTA [Suspect]
     Indication: INSOMNIA
     Dosage: 2 MG; PRN; ORAL; 3 MG; PRN, ORAL, 2 MG  ORAL
     Route: 048
     Dates: start: 20070701, end: 20070727
  3. LUNESTA [Suspect]
     Indication: INSOMNIA
     Dosage: 2 MG; PRN; ORAL; 3 MG; PRN, ORAL, 2 MG  ORAL
     Route: 048
     Dates: start: 20070728
  4. MIRTAZAPINE [Concomitant]
  5. METOPROLOL [Concomitant]
  6. ASPIRIN [Concomitant]
  7. LOVASTATIN [Concomitant]
  8. AMBIEN [Concomitant]

REACTIONS (2)
  - ANXIETY [None]
  - SOMNOLENCE [None]
